FAERS Safety Report 7452129-1 (Version None)
Quarter: 2011Q2

REPORT INFORMATION
  Report Type: 
  Country: None (occurrence: None)
  Receive Date: 20110502
  Receipt Date: 20110426
  Transmission Date: 20111010
  Serious: Yes (Hospitalization)
  Sender: FDA-Public Use
  Company Number: GXBR2011US01529

PATIENT
  Sex: Female
  Weight: 53.968 kg

DRUGS (2)
  1. NITROFURANTOIN CAPSULES USP [Suspect]
     Indication: URINARY TRACT INFECTION
     Dosage: 100 MG, BID
     Route: 048
     Dates: start: 20110416, end: 20110421
  2. LISINOPRIL [Concomitant]
     Indication: BLOOD PRESSURE
     Dosage: UNK MG, UNK

REACTIONS (2)
  - DIARRHOEA [None]
  - HAEMATOCHEZIA [None]
